FAERS Safety Report 5154389-9 (Version None)
Quarter: 2006Q4

REPORT INFORMATION
  Report Type: 
  Country: None (occurrence: None)
  Receive Date: 20061114
  Receipt Date: 20061031
  Transmission Date: 20070319
  Serious: Yes (Other)
  Sender: FDA-Public Use
  Company Number: 2006134320

PATIENT
  Sex: Male

DRUGS (1)
  1. SOBELIN (CLINDAMYCIN HYDROCHLORIDE) [Suspect]
     Indication: TOOTH DISORDER
     Dosage: ORAL
     Route: 048

REACTIONS (2)
  - EPIGLOTTIC OEDEMA [None]
  - FOREIGN BODY TRAUMA [None]
